FAERS Safety Report 21995775 (Version 1)
Quarter: 2023Q1

REPORT INFORMATION
  Report Type: Report from Study
  Country: TH (occurrence: None)
  Receive Date: 20230215
  Receipt Date: 20230215
  Transmission Date: 20230417
  Serious: Yes (Other)
  Sender: FDA-Public Use
  Company Number: 2023A035915

PATIENT
  Age: 20911 Day
  Sex: Female

DRUGS (1)
  1. TAGRISSO [Suspect]
     Active Substance: OSIMERTINIB
     Indication: Non-small cell lung cancer metastatic
     Route: 048
     Dates: start: 20211220

REACTIONS (16)
  - Adrenomegaly [Unknown]
  - Malignant neoplasm progression [Unknown]
  - Glomerular filtration rate decreased [Unknown]
  - Insomnia [Recovered/Resolved]
  - Cough [Recovered/Resolved]
  - Chest pain [Unknown]
  - Weight decreased [Unknown]
  - Abdominal pain upper [Unknown]
  - Sinusitis [Unknown]
  - Blood glucose increased [Unknown]
  - Haematocrit decreased [Unknown]
  - Red blood cell count decreased [Unknown]
  - Lymphocyte count decreased [Unknown]
  - White blood cell count decreased [Unknown]
  - Diarrhoea [Recovered/Resolved]
  - Dry skin [Recovered/Resolved]

NARRATIVE: CASE EVENT DATE: 20211222
